FAERS Safety Report 8233016-8 (Version None)
Quarter: 2012Q1

REPORT INFORMATION
  Report Type: 
  Country: None (occurrence: None)
  Receive Date: 20120326
  Receipt Date: 20120316
  Transmission Date: 20120608
  Serious: Yes (Other)
  Sender: FDA-Public Use
  Company Number: AU-BIOGENIDEC-2012BI009613

PATIENT
  Age: 73 Year
  Sex: Female

DRUGS (9)
  1. LYRICA [Concomitant]
     Indication: PRODUCT USED FOR UNKNOWN INDICATION
     Route: 048
     Dates: start: 20090101
  2. BACLOFEN [Concomitant]
  3. TYSABRI [Suspect]
     Indication: MULTIPLE SCLEROSIS
     Route: 042
  4. LIPITOR [Concomitant]
  5. DIGESIC [Concomitant]
  6. LEXAPRO [Concomitant]
  7. CARTIA XT [Concomitant]
  8. ARCOXIA [Concomitant]
  9. DITROPAN [Concomitant]

REACTIONS (2)
  - PANCYTOPENIA [None]
  - THROMBOCYTOPENIA [None]
